FAERS Safety Report 7485057-6 (Version None)
Quarter: 2011Q2

REPORT INFORMATION
  Report Type: 
  Country: None (occurrence: None)
  Receive Date: 20110517
  Receipt Date: 20110509
  Transmission Date: 20111010
  Serious: Yes (Other)
  Sender: FDA-Public Use
  Company Number: PE-ROCHE-776168

PATIENT
  Sex: Female
  Weight: 54 kg

DRUGS (1)
  1. HERCEPTIN [Suspect]
     Indication: BREAST CANCER
     Dosage: DOSING FREQUENCY NOT REPORTED
     Route: 042
     Dates: start: 20080830, end: 20100601

REACTIONS (1)
  - METASTASES TO LUNG [None]
